FAERS Safety Report 6361547-4 (Version None)
Quarter: 2009Q3

REPORT INFORMATION
  Report Type: 
  Country: None (occurrence: None)
  Receive Date: 20090915
  Receipt Date: 20090915
  Transmission Date: 20100115
  Serious: Yes (Hospitalization)
  Sender: FDA-Public Use
  Company Number: None

PATIENT
  Sex: Female
  Weight: 115.9 kg

DRUGS (3)
  1. SORAFENIB 200MG BAYER [Suspect]
     Indication: BREAST CANCER METASTATIC
  2. VINORELBINE [Suspect]
     Indication: BREAST CANCER METASTATIC
  3. OXYCODONE HCL [Concomitant]

REACTIONS (1)
  - NO ADVERSE EVENT [None]
